FAERS Safety Report 15368287 (Version 5)
Quarter: 2018Q4

REPORT INFORMATION
  Report Type: Report from Study
  Country: US (occurrence: US)
  Receive Date: 20180910
  Receipt Date: 20181227
  Transmission Date: 20190204
  Serious: Yes (Death, Hospitalization)
  Sender: FDA-Public Use
  Company Number: US-ACTELION-A-NJ2018-175152

PATIENT
  Age: 49 Year
  Sex: Female
  Weight: 58.96 kg

DRUGS (7)
  1. VELETRI [Suspect]
     Active Substance: EPOPROSTENOL
     Dosage: 20 NG/KG, PER MIN
     Route: 042
  2. LETAIRIS [Concomitant]
     Active Substance: AMBRISENTAN
  3. VELETRI [Suspect]
     Active Substance: EPOPROSTENOL
     Indication: PULMONARY ARTERIAL HYPERTENSION
     Dosage: 21 NG/KG, PER MIN
     Route: 042
  4. OXYGEN. [Concomitant]
     Active Substance: OXYGEN
  5. VELETRI [Suspect]
     Active Substance: EPOPROSTENOL
     Dosage: 16 NG/KG, PER MIN
     Route: 042
  6. SILDENAFIL CITRATE. [Concomitant]
     Active Substance: SILDENAFIL CITRATE
  7. AMLODIPINE [Concomitant]
     Active Substance: AMLODIPINE BESYLATE

REACTIONS (51)
  - Catheter site pruritus [Not Recovered/Not Resolved]
  - Dizziness postural [Unknown]
  - Asthenia [Unknown]
  - Cellulitis [Unknown]
  - Catheter site infection [Unknown]
  - Oxygen saturation decreased [Unknown]
  - Oedema peripheral [Unknown]
  - Dysarthria [Unknown]
  - Catheter site inflammation [Unknown]
  - Device alarm issue [Unknown]
  - Hypoxia [Unknown]
  - Device dislocation [Unknown]
  - Diarrhoea [Unknown]
  - Flushing [Unknown]
  - Decreased appetite [Unknown]
  - Swelling face [Unknown]
  - Throat irritation [Unknown]
  - Chapped lips [Unknown]
  - Feeling cold [Unknown]
  - Chills [Unknown]
  - Hypotension [Unknown]
  - Clostridium difficile infection [Not Recovered/Not Resolved]
  - Malaise [Unknown]
  - Nausea [Unknown]
  - Catheter site pain [Unknown]
  - Dry skin [Unknown]
  - Respiratory failure [Unknown]
  - Fluid retention [Unknown]
  - Dyspnoea [Not Recovered/Not Resolved]
  - Dizziness [Unknown]
  - Headache [Unknown]
  - Abdominal pain [Unknown]
  - Fatigue [Unknown]
  - Anxiety [Unknown]
  - Heart rate increased [Unknown]
  - Catheter site erythema [Not Recovered/Not Resolved]
  - Sepsis [Unknown]
  - Pain in jaw [Unknown]
  - Vomiting [Unknown]
  - Death [Fatal]
  - Pulmonary hypertension [Unknown]
  - Cardiac failure [Unknown]
  - Dyspnoea exertional [Not Recovered/Not Resolved]
  - Catheter site rash [Not Recovered/Not Resolved]
  - Dry mouth [Unknown]
  - Catheter site discharge [Unknown]
  - Device breakage [Unknown]
  - Catheter management [Unknown]
  - Depressed mood [Unknown]
  - Respiratory rate increased [Unknown]
  - Erythema [Unknown]

NARRATIVE: CASE EVENT DATE: 20180713
